FAERS Safety Report 8192263-4 (Version None)
Quarter: 2012Q1

REPORT INFORMATION
  Report Type: 
  Country: None (occurrence: None)
  Receive Date: 20120307
  Receipt Date: 20120229
  Transmission Date: 20120608
  Serious: Yes (Hospitalization, Other)
  Sender: FDA-Public Use
  Company Number: US-MERCK-0511USA03093

PATIENT
  Age: 54 Year
  Sex: Female
  Weight: 61 kg

DRUGS (17)
  1. FOSAMAX [Suspect]
     Indication: OSTEOPENIA
     Route: 048
     Dates: start: 20000301, end: 20010301
  2. PREMPRO [Concomitant]
     Route: 065
     Dates: start: 20000210, end: 20030530
  3. TEQUIN [Concomitant]
     Route: 065
     Dates: start: 20010110
  4. NIZORAL [Concomitant]
     Route: 065
     Dates: start: 20000224, end: 20001105
  5. NITROFURANTOIN [Concomitant]
     Indication: ACNE
     Route: 065
     Dates: start: 20000224, end: 20040802
  6. PAXIL [Concomitant]
     Route: 065
     Dates: start: 20001226
  7. ZOVIRAX [Concomitant]
     Route: 065
     Dates: start: 20000114, end: 20001219
  8. FLUOCINONIDE [Concomitant]
     Route: 065
     Dates: start: 20000118, end: 20001219
  9. RETIN-A [Concomitant]
     Route: 065
     Dates: start: 20000225
  10. CLARITIN [Concomitant]
     Route: 065
     Dates: start: 20010110
  11. DIFFERIN [Concomitant]
     Route: 065
     Dates: start: 20000224, end: 20001219
  12. FOSAMAX [Suspect]
     Route: 048
     Dates: start: 20010301, end: 20041101
  13. FOSAMAX PLUS D [Suspect]
     Indication: OSTEOPOROSIS
     Route: 065
     Dates: start: 20040101, end: 20060401
  14. FOSAMAX [Suspect]
     Indication: OSTEOPOROSIS
     Route: 048
     Dates: start: 20000301, end: 20010301
  15. FOSAMAX [Suspect]
     Route: 048
     Dates: start: 20010301, end: 20041101
  16. ALLEGRA [Concomitant]
     Indication: HYPERSENSITIVITY
     Route: 065
     Dates: start: 20000309, end: 20011230
  17. GUAIFENEX [Concomitant]
     Route: 065
     Dates: start: 20001107

REACTIONS (47)
  - PROTEINURIA [None]
  - BRONCHITIS [None]
  - DRUG INEFFECTIVE [None]
  - SLEEP DISORDER [None]
  - SCLERODERMA [None]
  - RENAL FAILURE [None]
  - PERIODONTITIS [None]
  - ANXIETY [None]
  - FATIGUE [None]
  - TACHYCARDIA [None]
  - JOINT CREPITATION [None]
  - APHTHOUS STOMATITIS [None]
  - GASTROOESOPHAGEAL REFLUX DISEASE [None]
  - GINGIVAL BLEEDING [None]
  - HYPERTENSION [None]
  - ORAL DISORDER [None]
  - DRY MOUTH [None]
  - TOOTH LOSS [None]
  - TOOTH FRACTURE [None]
  - RAYNAUD'S PHENOMENON [None]
  - PALPITATIONS [None]
  - LUNG NEOPLASM [None]
  - OESOPHAGEAL DISORDER [None]
  - DEPRESSION [None]
  - APHAGIA [None]
  - SYSTEMIC SCLEROSIS [None]
  - NECK PAIN [None]
  - OSTEONECROSIS OF JAW [None]
  - GINGIVAL DISORDER [None]
  - TOOTH DISORDER [None]
  - LOSS OF CONSCIOUSNESS [None]
  - PANIC ATTACK [None]
  - OTITIS MEDIA [None]
  - OSTEOMYELITIS [None]
  - ADVERSE EVENT [None]
  - DYSPHAGIA [None]
  - TOOTHACHE [None]
  - TOOTH INFECTION [None]
  - RENAL FAILURE CHRONIC [None]
  - BACK PAIN [None]
  - BONE DENSITY DECREASED [None]
  - DENTAL CARIES [None]
  - SINUS DISORDER [None]
  - RENAL DISORDER [None]
  - PULPITIS DENTAL [None]
  - INCISION SITE COMPLICATION [None]
  - MIGRAINE WITH AURA [None]
